FAERS Safety Report 16839024 (Version 1)
Quarter: 2019Q4

REPORT INFORMATION
  Report Type: Spontaneous
  Country: CA (occurrence: CA)
  Receive Date: 20190920
  Receipt Date: 20190920
  Transmission Date: 20200122
  Serious: Yes (Hospitalization, Disabling, Other)
  Sender: FDA-Public Use
  Company Number: None

PATIENT
  Age: 64 Year
  Sex: Female
  Weight: 105.75 kg

DRUGS (4)
  1. ZOPICLONE [Concomitant]
     Active Substance: ZOPICLONE
  2. MIRTAZAPINE. [Suspect]
     Active Substance: MIRTAZAPINE
     Indication: SLEEP DISORDER
     Dosage: ?          QUANTITY:1 TABLET(S);?
     Route: 048
     Dates: start: 20131001, end: 20190812
  3. AURO-ROSUVASTATIN [Concomitant]
  4. LORAZEPAM. [Concomitant]
     Active Substance: LORAZEPAM

REACTIONS (14)
  - Asthenia [None]
  - Presyncope [None]
  - Quality of life decreased [None]
  - Lethargy [None]
  - Feeling abnormal [None]
  - Balance disorder [None]
  - Withdrawal syndrome [None]
  - Insomnia [None]
  - Impaired driving ability [None]
  - Tremor [None]
  - Anxiety [None]
  - Infection [None]
  - Impaired work ability [None]
  - Nausea [None]

NARRATIVE: CASE EVENT DATE: 20190906
